FAERS Safety Report 4680246-8 (Version None)
Quarter: 2005Q2

REPORT INFORMATION
  Report Type: 
  Country: None (occurrence: None)
  Receive Date: 20050525
  Receipt Date: 20040414
  Transmission Date: 20051028
  Serious: Yes (Other)
  Sender: FDA-Public Use
  Company Number: 2250051-2005-00191

PATIENT
  Sex: Female

DRUGS (1)
  1. RHOGAM [Suspect]
     Indication: PRENATAL CARE
     Dosage: 300 UG 2X IM
     Route: 030
     Dates: start: 20050509

REACTIONS (3)
  - HEADACHE [None]
  - INFLUENZA LIKE ILLNESS [None]
  - MUSCULOSKELETAL STIFFNESS [None]
